FAERS Safety Report 7803347-1 (Version None)
Quarter: 2011Q4

REPORT INFORMATION
  Report Type: 
  Country: None (occurrence: None)
  Receive Date: 20111007
  Receipt Date: 20111003
  Transmission Date: 20120403
  Serious: Yes (Life-Threatening, Hospitalization, Other)
  Sender: FDA-Public Use
  Company Number: PHHY2011US65628

PATIENT
  Sex: Female

DRUGS (1)
  1. GILENYA [Suspect]
     Indication: MULTIPLE SCLEROSIS
     Dosage: 0.5 MG, QD
     Route: 048
     Dates: start: 20110701, end: 20110828

REACTIONS (9)
  - SEPSIS [None]
  - PNEUMONIA ASPIRATION [None]
  - DIABETIC KETOACIDOSIS [None]
  - MUSCLE SPASMS [None]
  - RESPIRATORY FAILURE [None]
  - METABOLIC ACIDOSIS [None]
  - GRAND MAL CONVULSION [None]
  - RENAL FAILURE ACUTE [None]
  - STATUS EPILEPTICUS [None]
